FAERS Safety Report 11315437 (Version 2)
Quarter: 2015Q3

REPORT INFORMATION
  Report Type: Spontaneous
  Country: FR (occurrence: FR)
  Receive Date: 20150728
  Receipt Date: 20150820
  Transmission Date: 20151125
  Serious: Yes (Hospitalization)
  Sender: FDA-Public Use
  Company Number: FR-ROCHE-1612474

PATIENT
  Age: 53 Year
  Sex: Female

DRUGS (9)
  1. ATARAX [Suspect]
     Active Substance: HYDROXYZINE\HYDROXYZINE HYDROCHLORIDE
     Indication: PRODUCT USED FOR UNKNOWN INDICATION
     Route: 048
     Dates: start: 20150612, end: 20150615
  2. PERFALGAN [Suspect]
     Active Substance: ACETAMINOPHEN
     Indication: PAIN
     Route: 042
     Dates: start: 20150612, end: 20150617
  3. VIALEBEX [Suspect]
     Active Substance: ALBUMIN (HUMAN)
     Indication: PRODUCT USED FOR UNKNOWN INDICATION
     Route: 042
     Dates: start: 20150611, end: 20150617
  4. ATARAX [Suspect]
     Active Substance: HYDROXYZINE\HYDROXYZINE HYDROCHLORIDE
     Route: 048
     Dates: start: 20150616, end: 20150617
  5. VALIUM [Suspect]
     Active Substance: DIAZEPAM
     Indication: ASTHENIA
     Route: 048
     Dates: start: 20150608, end: 20150610
  6. LAROXYL [Suspect]
     Active Substance: AMITRIPTYLINE
     Indication: NEURALGIA
     Route: 042
     Dates: start: 20150612, end: 20150615
  7. OXYNORM [Suspect]
     Active Substance: OXYCODONE HYDROCHLORIDE
     Indication: PAIN
     Route: 048
     Dates: start: 20150613, end: 20150617
  8. CLOTTAFACT [Suspect]
     Active Substance: FIBRINOGEN HUMAN
     Indication: HYPOFIBRINOGENAEMIA
     Route: 042
     Dates: start: 20150612, end: 20150615
  9. ACUPAN [Suspect]
     Active Substance: NEFOPAM HYDROCHLORIDE
     Indication: PAIN
     Route: 042
     Dates: start: 20150611, end: 20150617

REACTIONS (1)
  - Hepatocellular injury [Recovered/Resolved]

NARRATIVE: CASE EVENT DATE: 20150615
